FAERS Safety Report 9577737 (Version 2)
Quarter: 2013Q4

REPORT INFORMATION
  Report Type: Report from Study
  Country: GB (occurrence: GB)
  Receive Date: 20131001
  Receipt Date: 20131125
  Transmission Date: 20140711
  Serious: No
  Sender: FDA-Public Use
  Company Number: GB-US-EMD SERONO, INC.-7239840

PATIENT
  Sex: Male

DRUGS (1)
  1. REBIF [Suspect]
     Indication: PRODUCT USED FOR UNKNOWN INDICATION
     Route: 058
     Dates: start: 20130718

REACTIONS (3)
  - Dizziness [Unknown]
  - Influenza like illness [Unknown]
  - Drug dose omission [Unknown]
